FAERS Safety Report 7700192-2 (Version None)
Quarter: 2011Q3

REPORT INFORMATION
  Report Type: 
  Country: None (occurrence: None)
  Receive Date: 20110822
  Receipt Date: 20110810
  Transmission Date: 20111222
  Serious: Yes (Other)
  Sender: FDA-Public Use
  Company Number: US-JNJFOC-20110806399

PATIENT
  Age: 56 Year
  Sex: Female

DRUGS (16)
  1. IRON SUPPLEMENTS [Concomitant]
  2. TYLENOL-500 [Suspect]
     Indication: PRODUCT USED FOR UNKNOWN INDICATION
  3. NAPROXEN (ALEVE) [Concomitant]
  4. AMBRISENTAN [Suspect]
     Indication: PULMONARY HYPERTENSION
     Route: 048
     Dates: start: 20110212, end: 20110404
  5. FLUOXETINE [Concomitant]
  6. ALCOHOL [Suspect]
     Indication: PRODUCT USED FOR UNKNOWN INDICATION
  7. HYDROCHLOROTHIAZIDE [Concomitant]
  8. TRIAMTERENE [Concomitant]
  9. TYLENOL-500 [Suspect]
  10. PRAVASTATIN [Suspect]
     Indication: PRODUCT USED FOR UNKNOWN INDICATION
     Dates: end: 20110615
  11. ADVAIR DISKUS 100/50 [Concomitant]
  12. XANAX [Concomitant]
  13. OXYGEN [Concomitant]
  14. SPIRIVA [Concomitant]
  15. AMBIEN [Concomitant]
  16. PLAVIX [Concomitant]
     Dates: end: 20110615

REACTIONS (4)
  - MUSCLE SPASMS [None]
  - LIVER FUNCTION TEST ABNORMAL [None]
  - CONTUSION [None]
  - PAIN IN EXTREMITY [None]
